FAERS Safety Report 5306502-8 (Version None)
Quarter: 2007Q2

REPORT INFORMATION
  Report Type: 
  Country: None (occurrence: None)
  Receive Date: 20070417
  Receipt Date: 20070410
  Transmission Date: 20071010
  Serious: Yes (Hospitalization)
  Sender: FDA-Public Use
  Company Number: 2007P1000174

PATIENT
  Age: 44 Year
  Sex: Male

DRUGS (6)
  1. NICARDIPINE HYDROCHLORIDE [Suspect]
     Indication: DRUG USE FOR UNKNOWN INDICATION
     Dosage: 50 MG; BID;PO
     Route: 048
     Dates: start: 20061219, end: 20070124
  2. VALPROATE SODIUM [Suspect]
     Indication: DRUG USE FOR UNKNOWN INDICATION
     Dosage: 600 MG; QID; PO
     Route: 048
     Dates: start: 20061219, end: 20070124
  3. LORAZEPAM [Suspect]
     Indication: DRUG USE FOR UNKNOWN INDICATION
     Dosage: 1 MG; PO
     Route: 048
     Dates: start: 20061219, end: 20070124
  4. ENOXAPARIN SODIUM [Suspect]
     Indication: DRUG USE FOR UNKNOWN INDICATION
     Dosage: SC
     Route: 058
     Dates: start: 20061219, end: 20070124
  5. ESOMEPRAZOLE (ESOMEPRAZOLE) [Suspect]
     Indication: DRUG USE FOR UNKNOWN INDICATION
     Dosage: 20 MG; PO
     Route: 048
     Dates: start: 20061219, end: 20070124
  6. RAMIPRIL [Suspect]
     Indication: DRUG USE FOR UNKNOWN INDICATION
     Dosage: 15 MG; PO
     Route: 048
     Dates: start: 20070119, end: 20070124

REACTIONS (4)
  - NEUTROPENIA [None]
  - RHEUMATOID FACTOR INCREASED [None]
  - SPLENOMEGALY [None]
  - WHITE BLOOD CELL COUNT INCREASED [None]
